FAERS Safety Report 4790479-8 (Version None)
Quarter: 2005Q4

REPORT INFORMATION
  Report Type: 
  Country: None (occurrence: None)
  Receive Date: 20051005
  Receipt Date: 20050918
  Transmission Date: 20060501
  Serious: Yes (Hospitalization, Other)
  Sender: FDA-Public Use
  Company Number: USA0509107717

PATIENT
  Age: 35 Year
  Sex: Female
  Weight: 86 kg

DRUGS (4)
  1. CYMBALTA [Suspect]
     Indication: DEPRESSION
     Dosage: 60 MG
     Dates: start: 20050415, end: 20050819
  2. LAMICTAL [Concomitant]
  3. SEROQUEL [Concomitant]
  4. COPRAL [Concomitant]

REACTIONS (8)
  - CONFUSIONAL STATE [None]
  - HEPATIC FAILURE [None]
  - HYPOTENSION [None]
  - JAUNDICE [None]
  - MENTAL STATUS CHANGES [None]
  - OEDEMA [None]
  - RENAL FAILURE [None]
  - SEPSIS [None]
